FAERS Safety Report 6847779-7 (Version None)
Quarter: 2010Q3

REPORT INFORMATION
  Report Type: 
  Country: None (occurrence: None)
  Receive Date: 20100716
  Receipt Date: 20100707
  Transmission Date: 20110219
  Serious: Yes (Other)
  Sender: FDA-Public Use
  Company Number: US-JNJFOC-20100603936

PATIENT
  Sex: Male
  Weight: 142.88 kg

DRUGS (15)
  1. REMICADE [Suspect]
     Indication: PSORIATIC ARTHROPATHY
     Route: 042
  2. REMICADE [Suspect]
     Route: 042
  3. REMICADE [Suspect]
     Route: 042
  4. DIOVAN [Concomitant]
     Indication: HYPERTENSION
  5. ADDERALL 10 [Concomitant]
     Indication: ATTENTION DEFICIT/HYPERACTIVITY DISORDER
  6. SINGULAIR [Concomitant]
     Indication: ASTHMA
  7. COMBIVENT [Concomitant]
     Indication: ASTHMA
  8. ALLEGRA [Concomitant]
     Indication: ASTHMA
  9. ADVAIR DISKUS 100/50 [Concomitant]
     Indication: ASTHMA
  10. PREVACID [Concomitant]
     Indication: GASTROOESOPHAGEAL REFLUX DISEASE
  11. WELLBUTRIN [Concomitant]
     Indication: ANXIETY
  12. WELLBUTRIN [Concomitant]
     Indication: DEPRESSION
  13. ZOLOFT [Concomitant]
     Indication: ANXIETY
  14. ZOLOFT [Concomitant]
     Indication: DEPRESSION
  15. NAPROXEN [Concomitant]
     Indication: ARTHRITIS

REACTIONS (2)
  - DEHYDRATION [None]
  - DIARRHOEA [None]
